FAERS Safety Report 9228953 (Version 3)
Quarter: 2013Q2

REPORT INFORMATION
  Report Type: Spontaneous
  Country: US (occurrence: US)
  Receive Date: 20130412
  Receipt Date: 20130501
  Transmission Date: 20140414
  Serious: Yes (Other)
  Sender: FDA-Public Use
  Company Number: US-TEVA-396859USA

PATIENT
  Age: 24 Year
  Sex: Female
  Weight: 64.01 kg

DRUGS (1)
  1. PARAGARD 380A [Suspect]
     Indication: CONTRACEPTION
     Route: 015
     Dates: start: 20120719, end: 20130326

REACTIONS (3)
  - Uterine dilation and evacuation [Unknown]
  - Drug ineffective [Recovered/Resolved with Sequelae]
  - Amenorrhoea [Unknown]
